FAERS Safety Report 26054743 (Version 1)
Quarter: 2025Q4

REPORT INFORMATION
  Report Type: Spontaneous
  Country: US (occurrence: US)
  Receive Date: 20251117
  Receipt Date: 20251117
  Transmission Date: 20260118
  Serious: No
  Sender: SANDOZ
  Company Number: US-SANDOZ-SDZ2025US084110

PATIENT

DRUGS (1)
  1. ALBUTEROL SULFATE [Suspect]
     Active Substance: ALBUTEROL SULFATE
     Indication: Product used for unknown indication
     Dosage: ORAL INHALATION
     Route: 055

REACTIONS (3)
  - Circumstance or information capable of leading to medication error [Unknown]
  - Product packaging quantity issue [Unknown]
  - Device issue [Unknown]
